FAERS Safety Report 7163996-3 (Version None)
Quarter: 2010Q4

REPORT INFORMATION
  Report Type: 
  Country: None (occurrence: None)
  Receive Date: 20101215
  Receipt Date: 20101208
  Transmission Date: 20110411
  Serious: Yes (Hospitalization)
  Sender: FDA-Public Use
  Company Number: A0870189A

PATIENT
  Age: 57 Year
  Sex: Male

DRUGS (6)
  1. VOTRIENT [Suspect]
     Dosage: 400MG PER DAY
     Route: 048
     Dates: start: 20100516
  2. DIOVAN [Concomitant]
  3. NORVASC [Concomitant]
  4. SIMVASTATIN [Concomitant]
  5. PEPCID [Concomitant]
  6. SYNTHROID [Concomitant]

REACTIONS (4)
  - ADVERSE EVENT [None]
  - DYSPEPSIA [None]
  - HAIR COLOUR CHANGES [None]
  - HYPERTENSION [None]
